FAERS Safety Report 15933231 (Version 1)
Quarter: 2019Q1

REPORT INFORMATION
  Report Type: Spontaneous
  Country: US (occurrence: US)
  Receive Date: 20190207
  Receipt Date: 20190207
  Transmission Date: 20190417
  Serious: Yes (Other)
  Sender: FDA-Public Use
  Company Number: US-BAYER-2018-088475

PATIENT
  Age: 73 Year
  Sex: Male
  Weight: 70 kg

DRUGS (3)
  1. ALKA-SELTZER PLUS DAY NON-DROWSY COLD AND FLU FORMULA [Suspect]
     Active Substance: ACETAMINOPHEN\DEXTROMETHORPHAN HYDROBROMIDE\PHENYLEPHRINE HYDROCHLORIDE
     Indication: NASOPHARYNGITIS
     Dosage: UNK
     Route: 048
     Dates: start: 20190122, end: 20190122
  2. SIMVASTATIN. [Concomitant]
     Active Substance: SIMVASTATIN
  3. ALKA-SELTZER PLUS DAY NON-DROWSY COLD AND FLU FORMULA [Suspect]
     Active Substance: ACETAMINOPHEN\DEXTROMETHORPHAN HYDROBROMIDE\PHENYLEPHRINE HYDROCHLORIDE
     Indication: ALLERGIC RESPIRATORY SYMPTOM
     Dosage: 2 DF, UNK
     Route: 048
     Dates: start: 20180507, end: 20180508

REACTIONS (4)
  - Foreign body in respiratory tract [Recovered/Resolved]
  - Panic attack [Recovered/Resolved]
  - Dyspnoea [Unknown]
  - Product use complaint [None]

NARRATIVE: CASE EVENT DATE: 20180508
